FAERS Safety Report 24331774 (Version 1)
Quarter: 2024Q3

REPORT INFORMATION
  Report Type: Spontaneous
  Country: ES (occurrence: ES)
  Receive Date: 20240918
  Receipt Date: 20240918
  Transmission Date: 20241016
  Serious: Yes (Other)
  Sender: ACCORD
  Company Number: ES-MLMSERVICE-20240830-PI176899-00043-1

PATIENT
  Age: 62 Year
  Sex: Female

DRUGS (2)
  1. ALLOPURINOL [Suspect]
     Active Substance: ALLOPURINOL
     Indication: Product used for unknown indication
  2. METAMIZOLE [Concomitant]
     Active Substance: METAMIZOLE

REACTIONS (3)
  - Lymphadenopathy [Recovering/Resolving]
  - Hepatic steatosis [Recovering/Resolving]
  - Drug reaction with eosinophilia and systemic symptoms [Recovering/Resolving]
